FAERS Safety Report 14258884 (Version 1)
Quarter: 2017Q4

REPORT INFORMATION
  Report Type: Spontaneous
  Country: US (occurrence: US)
  Receive Date: 20171207
  Receipt Date: 20171207
  Transmission Date: 20180321
  Serious: No
  Sender: FDA-Public Use
  Company Number: US-ALLERGAN-1717472US

PATIENT
  Sex: Female

DRUGS (1)
  1. FEMCON FE [Suspect]
     Active Substance: ETHINYL ESTRADIOL\NORETHINDRONE ACETATE
     Indication: CONTRACEPTION
     Dosage: UNK, QD
     Dates: start: 2009

REACTIONS (2)
  - Vaginal haemorrhage [Recovered/Resolved]
  - Hormone level abnormal [Recovered/Resolved]
